FAERS Safety Report 9288909 (Version 1)
Quarter: 2013Q2

REPORT INFORMATION
  Report Type: Spontaneous
  Country: US (occurrence: US)
  Receive Date: 20130514
  Receipt Date: 20130514
  Transmission Date: 20140414
  Serious: Yes (Other)
  Sender: FDA-Public Use
  Company Number: US-ABBOTT-13P-163-1085963-00

PATIENT
  Sex: Female
  Weight: 46.31 kg

DRUGS (5)
  1. SYNTHROID [Suspect]
     Indication: HYPOTHYROIDISM
     Dosage: ALTERNATE 50MCG WITH 75 MCG EOD
     Dates: start: 201209, end: 201304
  2. SYNTHROID [Suspect]
     Dates: start: 201304
  3. SYNTHROID [Suspect]
     Indication: HYPOTHYROIDISM
     Dosage: ALTERNATE 50MCG WITH 75 MCG EOD
     Dates: start: 201209, end: 201304
  4. ACIPHEX [Concomitant]
     Indication: PRODUCT USED FOR UNKNOWN INDICATION
  5. VITAMIN D [Concomitant]
     Indication: PRODUCT USED FOR UNKNOWN INDICATION

REACTIONS (2)
  - Blood cholesterol increased [Not Recovered/Not Resolved]
  - Gastric disorder [Recovered/Resolved]
